FAERS Safety Report 19870053 (Version 2)
Quarter: 2022Q1

REPORT INFORMATION
  Report Type: Report from Study
  Country: BR (occurrence: BR)
  Receive Date: 20210923
  Receipt Date: 20220127
  Transmission Date: 20220423
  Serious: Yes (Other)
  Sender: FDA-Public Use
  Company Number: BR-NOVOPROD-847181

PATIENT
  Age: 25 Year
  Sex: Male
  Weight: 103 kg

DRUGS (3)
  1. OZEMPIC [Suspect]
     Active Substance: SEMAGLUTIDE
     Indication: Obesity
     Dosage: UNK
     Route: 065
     Dates: start: 20210909
  2. OZEMPIC [Suspect]
     Active Substance: SEMAGLUTIDE
     Indication: Blood cholesterol increased
  3. OZEMPIC [Suspect]
     Active Substance: SEMAGLUTIDE
     Indication: Blood glucose increased

REACTIONS (10)
  - Device malfunction [Unknown]
  - Loss of consciousness [Recovered/Resolved]
  - Abdominal distension [Recovering/Resolving]
  - Eructation [Recovering/Resolving]
  - Nausea [Recovering/Resolving]
  - Injection site discolouration [Unknown]
  - Urine odour abnormal [Unknown]
  - Drug delivery system issue [Unknown]
  - Off label use [Unknown]
  - Off label use [Unknown]

NARRATIVE: CASE EVENT DATE: 20210909
